FAERS Safety Report 19362640 (Version 3)
Quarter: 2021Q2

REPORT INFORMATION
  Report Type: Spontaneous
  Country: US (occurrence: US)
  Receive Date: 20210601
  Receipt Date: 20210623
  Transmission Date: 20210717
  Serious: Yes (Other)
  Sender: FDA-Public Use
  Company Number: US-PFIZER INC-2021503681

PATIENT
  Age: 74 Year
  Sex: Male

DRUGS (1)
  1. EUCRISA [Suspect]
     Active Substance: CRISABOROLE
     Dosage: UNK (60?G TUBE; APPLY TO AFFECTED AREA OF FACE UNTIL CLEAR)
     Route: 061

REACTIONS (2)
  - Diabetes mellitus [Unknown]
  - Hypertension [Unknown]
